FAERS Safety Report 19511658 (Version 1)
Quarter: 2021Q3

REPORT INFORMATION
  Report Type: Spontaneous
  Country: US (occurrence: US)
  Receive Date: 20210709
  Receipt Date: 20210709
  Transmission Date: 20211014
  Serious: No
  Sender: FDA-Public Use
  Company Number: None

PATIENT
  Age: 60 Year
  Sex: Male

DRUGS (1)
  1. SOFOSBUVIR AND VELPATASVIR [Suspect]
     Active Substance: SOFOSBUVIR\VELPATASVIR
     Indication: HEPATITIS C
     Dosage: ?          OTHER DOSE:400/100 DF;?
     Route: 048
     Dates: start: 20210614

REACTIONS (1)
  - Microvascular cranial nerve palsy [None]

NARRATIVE: CASE EVENT DATE: 20210701
